FAERS Safety Report 6381102-X (Version None)
Quarter: 2009Q3

REPORT INFORMATION
  Report Type: 
  Country: None (occurrence: None)
  Receive Date: 20090924
  Receipt Date: 20090806
  Transmission Date: 20100115
  Serious: Yes (Hospitalization)
  Sender: FDA-Public Use
  Company Number: 230486K09BRA

PATIENT
  Age: 24 Year
  Sex: Female

DRUGS (2)
  1. REBIF [Suspect]
     Indication: RELAPSING-REMITTING MULTIPLE SCLEROSIS
     Dosage: 44 MCG, 3 IN 1 WEEKS
     Dates: start: 20090112
  2. SIBUTRAMINE (SIBUTRAMINE) [Concomitant]

REACTIONS (5)
  - BALANCE DISORDER [None]
  - DROOLING [None]
  - HEADACHE [None]
  - PAIN [None]
  - VISUAL ACUITY REDUCED [None]
